FAERS Safety Report 22229208 (Version 1)
Quarter: 2023Q2

REPORT INFORMATION
  Report Type: Spontaneous
  Country: US (occurrence: US)
  Receive Date: 20230419
  Receipt Date: 20230419
  Transmission Date: 20230721
  Serious: No
  Sender: FDA-Public Use
  Company Number: US-ALLERGAN-2215028US

PATIENT
  Age: 58 Year
  Sex: Female

DRUGS (2)
  1. RESTASIS [Suspect]
     Active Substance: CYCLOSPORINE
     Indication: Dry eye
     Dosage: 2 GTT, Q12H
     Route: 047
     Dates: start: 20220425, end: 20220505
  2. RESTASIS [Suspect]
     Active Substance: CYCLOSPORINE
     Dosage: 4 GTT, BID
     Route: 047
     Dates: start: 20220506

REACTIONS (5)
  - Oropharyngeal pain [Recovered/Resolved]
  - Inappropriate schedule of product administration [Unknown]
  - Accidental exposure to product [Unknown]
  - Throat irritation [Unknown]
  - Product delivery mechanism issue [Unknown]

NARRATIVE: CASE EVENT DATE: 20220502
